FAERS Safety Report 18511590 (Version 5)
Quarter: 2022Q1

REPORT INFORMATION
  Report Type: Spontaneous
  Country: US (occurrence: US)
  Receive Date: 20201117
  Receipt Date: 20220308
  Transmission Date: 20220423
  Serious: Yes (Other)
  Sender: FDA-Public Use
  Company Number: US-GILEAD-2020-0503438

PATIENT
  Age: 61 Year
  Sex: Male
  Weight: 92.1 kg

DRUGS (14)
  1. TRUVADA [Suspect]
     Active Substance: EMTRICITABINE\TENOFOVIR DISOPROXIL FUMARATE
     Indication: HIV infection
     Dosage: UNK
     Route: 048
     Dates: start: 2006, end: 2009
  2. VIREAD [Suspect]
     Active Substance: TENOFOVIR DISOPROXIL FUMARATE
     Indication: HIV infection
     Dosage: UNK
     Route: 048
     Dates: start: 2004, end: 2009
  3. VIREAD [Suspect]
     Active Substance: TENOFOVIR DISOPROXIL FUMARATE
     Dosage: UNK
     Route: 048
     Dates: start: 200707, end: 200909
  4. VIREAD [Suspect]
     Active Substance: TENOFOVIR DISOPROXIL FUMARATE
     Dosage: UNK
     Route: 048
     Dates: start: 200708, end: 2009
  5. ACYCLOVIR [Concomitant]
     Active Substance: ACYCLOVIR
  6. ASPIRIN [Concomitant]
     Active Substance: ASPIRIN
  7. GLYBURIDE [Concomitant]
     Active Substance: GLYBURIDE
  8. INTELENCE [Concomitant]
     Active Substance: ETRAVIRINE
  9. ISENTRESS [Concomitant]
     Active Substance: RALTEGRAVIR POTASSIUM
  10. NORVIR [Concomitant]
     Active Substance: RITONAVIR
  11. PREZISTA [Concomitant]
     Active Substance: DARUNAVIR ETHANOLATE
  12. MELATONIN [Concomitant]
     Active Substance: MELATONIN
  13. JANUVIA [Concomitant]
     Active Substance: SITAGLIPTIN PHOSPHATE
  14. SLEEP AID [MELATONIN] [Concomitant]

REACTIONS (5)
  - Chronic kidney disease [Not Recovered/Not Resolved]
  - Renal injury [Unknown]
  - Anxiety [Not Recovered/Not Resolved]
  - Renal impairment [Unknown]
  - Asthenia [Recovered/Resolved]

NARRATIVE: CASE EVENT DATE: 20090901
